FAERS Safety Report 13506483 (Version 1)
Quarter: 2017Q2

REPORT INFORMATION
  Report Type: Spontaneous
  Country: US (occurrence: US)
  Receive Date: 20170502
  Receipt Date: 20170502
  Transmission Date: 20170830
  Serious: No
  Sender: FDA-Public Use
  Company Number: US-ROCHE-1465820

PATIENT
  Sex: Female
  Weight: 63.56 kg

DRUGS (6)
  1. CYMBALTA [Concomitant]
     Active Substance: DULOXETINE HYDROCHLORIDE
     Dosage: DUATION 1 YEAR
     Route: 065
     Dates: start: 201407
  2. AVASTIN [Suspect]
     Active Substance: BEVACIZUMAB
     Indication: NEOVASCULAR AGE-RELATED MACULAR DEGENERATION
     Dosage: OS
     Route: 050
     Dates: start: 201206, end: 201312
  3. EYLEA [Concomitant]
     Active Substance: AFLIBERCEPT
     Dosage: OD
     Route: 050
     Dates: start: 201401, end: 20140814
  4. LYRICA [Concomitant]
     Active Substance: PREGABALIN
     Dosage: DURATION 1 YEAR
     Route: 065
     Dates: start: 200907
  5. EYLEA [Concomitant]
     Active Substance: AFLIBERCEPT
     Indication: NEOVASCULAR AGE-RELATED MACULAR DEGENERATION
     Dosage: OS
     Route: 050
     Dates: start: 201401, end: 20140815
  6. AVASTIN [Suspect]
     Active Substance: BEVACIZUMAB
     Dosage: OD
     Route: 050
     Dates: start: 201312, end: 201401

REACTIONS (4)
  - Visual impairment [Unknown]
  - Unevaluable event [Unknown]
  - Vision blurred [Unknown]
  - Drug effect decreased [Unknown]
